FAERS Safety Report 5021203-1 (Version None)
Quarter: 2006Q2

REPORT INFORMATION
  Report Type: 
  Country: None (occurrence: None)
  Receive Date: 20060605
  Receipt Date: 20060525
  Transmission Date: 20061013
  Serious: No
  Sender: FDA-Public Use
  Company Number: 225321

PATIENT
  Age: 10 Year
  Sex: Female
  Weight: 17.6 kg

DRUGS (2)
  1. NUTROPIN AQ [Suspect]
     Indication: GROWTH HORMONE DEFICIENCY
     Dosage: 15 MG, 7/WEEK,  SUBCUTANEOUS
     Route: 058
  2. LUPRON DEPOT (LEUPROLIDE ACETATE) [Concomitant]

REACTIONS (4)
  - BACTERIA URINE IDENTIFIED [None]
  - CRYSTAL URINE PRESENT [None]
  - HAEMATURIA [None]
  - URINARY SEDIMENT PRESENT [None]
